FAERS Safety Report 5241590-9 (Version None)
Quarter: 2007Q1

REPORT INFORMATION
  Report Type: 
  Country: None (occurrence: None)
  Receive Date: 20070212
  Receipt Date: 20070212
  Transmission Date: 20070707
  Serious: No
  Sender: FDA-Public Use
  Company Number: None

PATIENT
  Sex: Female
  Weight: 65.32 kg

DRUGS (6)
  1. CISPLATIN [Suspect]
     Indication: ENDOMETRIAL CANCER RECURRENT
     Dosage: 86 MG
  2. CISPLATIN [Suspect]
     Indication: ENDOMETRIAL CANCER STAGE III
     Dosage: 86 MG
  3. CISPLATIN [Suspect]
     Indication: ENDOMETRIAL CANCER STAGE IV
     Dosage: 86 MG
  4. DOXORUBICIN HYDROCHLORIDE [Suspect]
     Dosage: 78 MG
  5. G-CSF (FILGRASTIM, AMGEN) [Suspect]
     Dosage: 6 MG
  6. TAXOL [Suspect]
     Dosage: 277 MG

REACTIONS (3)
  - DRUG TOXICITY [None]
  - NEUTROPHIL COUNT DECREASED [None]
  - WHITE BLOOD CELL COUNT DECREASED [None]
